FAERS Safety Report 5186788-3 (Version None)
Quarter: 2006Q4

REPORT INFORMATION
  Report Type: 
  Country: None (occurrence: None)
  Receive Date: 20061220
  Receipt Date: 20061101
  Transmission Date: 20070319
  Serious: No
  Sender: FDA-Public Use
  Company Number: US-AMGEN-KDL198890

PATIENT
  Sex: Female

DRUGS (3)
  1. ENBREL [Suspect]
     Indication: RHEUMATOID ARTHRITIS
     Route: 058
     Dates: start: 20061001
  2. METHOTREXATE [Concomitant]
     Route: 048
     Dates: start: 20060801
  3. PLAQUENIL [Concomitant]
     Route: 048
     Dates: start: 19910101

REACTIONS (3)
  - MUSCULOSKELETAL STIFFNESS [None]
  - SINUS CONGESTION [None]
  - SINUS HEADACHE [None]
